FAERS Safety Report 12781268 (Version 1)
Quarter: 2016Q3

REPORT INFORMATION
  Report Type: Report from Study
  Country: DE (occurrence: DE)
  Receive Date: 20160926
  Receipt Date: 20160926
  Transmission Date: 20161109
  Serious: Yes (Other)
  Sender: FDA-Public Use
  Company Number: DE-ABBVIE-16K-062-1569184-00

PATIENT
  Sex: Male

DRUGS (2)
  1. HUMIRA [Suspect]
     Active Substance: ADALIMUMAB
     Indication: CROHN^S DISEASE
     Route: 058
     Dates: start: 2009, end: 20160815
  2. HUMIRA [Suspect]
     Active Substance: ADALIMUMAB
     Route: 058

REACTIONS (5)
  - Intestinal stenosis [Not Recovered/Not Resolved]
  - Drug effect decreased [Unknown]
  - Gastrointestinal pain [Not Recovered/Not Resolved]
  - Drug level decreased [Unknown]
  - Diarrhoea [Not Recovered/Not Resolved]
